FAERS Safety Report 21703675 (Version 1)
Quarter: 2022Q4

REPORT INFORMATION
  Report Type: Spontaneous
  Country: DE (occurrence: DE)
  Receive Date: 20221209
  Receipt Date: 20221209
  Transmission Date: 20230113
  Serious: Yes (Other)
  Sender: FDA-Public Use
  Company Number: DE-ALKEM LABORATORIES LIMITED-DE-ALKEM-2022-10887

PATIENT
  Sex: Male
  Weight: 99.6 kg

DRUGS (6)
  1. DEFERASIROX [Suspect]
     Active Substance: DEFERASIROX
     Indication: Iron overload
     Dosage: 7.2 MILLIGRAM/KILOGRAM, QD (EVERY 1 DAY)
     Route: 048
     Dates: start: 20200305, end: 20200923
  2. RUXOLITINIB [Suspect]
     Active Substance: RUXOLITINIB
     Indication: Primary myelofibrosis
     Dosage: 30 MILLIGRAM, QD (EVERY 1 DAY)
     Route: 048
     Dates: start: 20181119
  3. RUXOLITINIB [Suspect]
     Active Substance: RUXOLITINIB
     Dosage: 25 MILLIGRAM, QD (EVERY 1 DAY)
     Route: 048
     Dates: start: 20190424, end: 20190723
  4. RUXOLITINIB [Suspect]
     Active Substance: RUXOLITINIB
     Dosage: 20 MILLIGRAM, QD (EVERY 1 DAY)
     Route: 048
     Dates: start: 20190724, end: 20200702
  5. RUXOLITINIB [Suspect]
     Active Substance: RUXOLITINIB
     Dosage: 30 MILLIGRAM, QD (EVERY 1 DAY)
     Route: 048
     Dates: start: 20200703
  6. DICLOFENAC [Concomitant]
     Active Substance: DICLOFENAC
     Indication: Bone pain
     Dosage: 225 MILLIGRAM, QD (EVERY 1 DAY)
     Route: 048
     Dates: start: 20190918

REACTIONS (1)
  - Renal failure [Not Recovered/Not Resolved]

NARRATIVE: CASE EVENT DATE: 20200923
